FAERS Safety Report 8600433-3 (Version None)
Quarter: 2012Q3

REPORT INFORMATION
  Report Type: 
  Country: None (occurrence: None)
  Receive Date: 20120808
  Receipt Date: 20120808
  Transmission Date: 20120928
  Serious: Yes (Life-Threatening, Hospitalization)
  Sender: FDA-Public Use
  Company Number: None

PATIENT
  Sex: Male
  Weight: 80.7403 kg

DRUGS (1)
  1. PRIMATENE MIST [Suspect]
     Indication: DYSPNOEA
     Dosage: INHALE USE THEN IN ONE MIN. THEN IN 3HRS
     Route: 055
     Dates: start: 20110725

REACTIONS (2)
  - DYSPNOEA [None]
  - OXYGEN SATURATION DECREASED [None]
